FAERS Safety Report 18161295 (Version 4)
Quarter: 2020Q3

REPORT INFORMATION
  Report Type: Report from Study
  Country: FR (occurrence: FR)
  Receive Date: 20200818
  Receipt Date: 20200912
  Transmission Date: 20201103
  Serious: Yes (Hospitalization)
  Sender: FDA-Public Use
  Company Number: FR-ROCHE-2656740

PATIENT
  Age: 83 Year
  Sex: Male

DRUGS (3)
  1. PEMETREXED. [Suspect]
     Active Substance: PEMETREXED
     Indication: MESOTHELIOMA
     Dosage: DATE OF LAST ADMINISTRATION OF PEMETREXED PRIOR TO ONSET SAE 17/JUL/2020
     Route: 042
     Dates: start: 20200717
  2. BEVACIZUMAB. [Suspect]
     Active Substance: BEVACIZUMAB
     Indication: MESOTHELIOMA
     Dosage: DATE OF THE LOST ADMINISTRATION OF BEVACIZUMAB PRIOR TO SAE ONSET 17/JUL/2020
     Route: 042
     Dates: start: 20200717
  3. CARBOPLATIN. [Suspect]
     Active Substance: CARBOPLATIN
     Indication: MESOTHELIOMA
     Dosage: DATE OF THE LAST ADMINISTRATION OF CARBOPLATIN PRIOR TO SAE ONSET 17/JUL/2020
     Route: 042
     Dates: start: 20200717

REACTIONS (1)
  - Ill-defined disorder [Recovered/Resolved]

NARRATIVE: CASE EVENT DATE: 20200721
